FAERS Safety Report 6287072-7 (Version None)
Quarter: 2009Q3

REPORT INFORMATION
  Report Type: 
  Country: None (occurrence: None)
  Receive Date: 20090728
  Receipt Date: 20090716
  Transmission Date: 20100115
  Serious: Yes (Life-Threatening, Disabling)
  Sender: FDA-Public Use
  Company Number: DK-AVENTIS-200911106EU

PATIENT
  Age: 62 Year
  Sex: Male
  Weight: 78 kg

DRUGS (2)
  1. RILUTEK [Suspect]
     Route: 048
     Dates: start: 20080901, end: 20090131
  2. BAKLOFEN [Concomitant]
     Route: 048
     Dates: start: 20080602

REACTIONS (1)
  - PROSTATE CANCER METASTATIC [None]
